FAERS Safety Report 9852295 (Version 1)
Quarter: 2014Q1

REPORT INFORMATION
  Report Type: Spontaneous
  Country: JP (occurrence: JP)
  Receive Date: 20140129
  Receipt Date: 20140129
  Transmission Date: 20141002
  Serious: Yes (Hospitalization)
  Sender: FDA-Public Use
  Company Number: JP-NOVOPROD-398834

PATIENT
  Age: 28 Year
  Sex: Female

DRUGS (2)
  1. NOVOLIN N CHU FLEXPEN [Suspect]
     Indication: SUICIDE ATTEMPT
     Dosage: 600 IU, SINGLE
     Route: 030
  2. FLUVOXAMINE [Suspect]
     Dosage: 2530 MG, UNK

REACTIONS (3)
  - Suicide attempt [Unknown]
  - Intentional overdose [Unknown]
  - Hypoglycaemia [Recovered/Resolved]
